FAERS Safety Report 9562789 (Version 2)
Quarter: 2013Q4

REPORT INFORMATION
  Report Type: Spontaneous
  Country: FI (occurrence: FI)
  Receive Date: 20130927
  Receipt Date: 20131026
  Transmission Date: 20140711
  Serious: Yes (Life-Threatening)
  Sender: FDA-Public Use
  Company Number: FI-BRISTOL-MYERS SQUIBB COMPANY-19436526

PATIENT
  Age: 55 Year
  Sex: Female

DRUGS (1)
  1. BYETTA [Suspect]
     Dosage: INITIALLY STARTED 5MG ON 2013
     Dates: start: 201308

REACTIONS (2)
  - Hypoglycaemia [Unknown]
  - Weight decreased [Unknown]
